FAERS Safety Report 8816427 (Version 1)
Quarter: 2012Q4

REPORT INFORMATION
  Report Type: Spontaneous
  Country: US (occurrence: None)
  Receive Date: 20120928
  Receipt Date: 20120928
  Transmission Date: 20130627
  Serious: Yes (Hospitalization)
  Sender: FDA-Public Use
  Company Number: None

PATIENT
  Age: 63 Year
  Sex: Female
  Weight: 64.49 kg

DRUGS (5)
  1. ONDANSETRON [Suspect]
     Indication: GASTROENTERITIS
     Route: 042
     Dates: start: 20120926, end: 20120926
  2. LIPITOR [Concomitant]
  3. METHOTREXATE [Concomitant]
  4. TRAMADOL [Concomitant]
  5. MOTRIN [Concomitant]

REACTIONS (5)
  - Psychotic disorder [None]
  - Drug ineffective [None]
  - Hallucination [None]
  - Aggression [None]
  - Disorientation [None]
